FAERS Safety Report 5285706-7 (Version None)
Quarter: 2007Q1

REPORT INFORMATION
  Report Type: 
  Country: None (occurrence: None)
  Receive Date: 20070126
  Receipt Date: 20060819
  Transmission Date: 20070707
  Serious: Yes (Death)
  Sender: FDA-Public Use
  Company Number: 2006CT000786

PATIENT
  Age: 79 Year
  Sex: Female
  Weight: 75.3 kg

DRUGS (16)
  1. VENTAVIS [Suspect]
     Indication: PULMONARY HYPERTENSION
     Dosage: SEE IMAGE
     Route: 055
     Dates: end: 20060801
  2. VENTAVIS [Suspect]
     Indication: PULMONARY HYPERTENSION
     Dosage: SEE IMAGE
     Route: 055
     Dates: start: 20060801, end: 20060818
  3. VENTAVIS [Suspect]
     Indication: PULMONARY HYPERTENSION
     Dosage: SEE IMAGE
     Route: 055
     Dates: start: 20050617
  4. FERROUS SULFATE [Concomitant]
  5. FOLIC ACID W/VITAMIN B NOS [Concomitant]
  6. SYNTHROID [Concomitant]
  7. ACETAMINOPHEN [Concomitant]
  8. POTASSIUM CHLORIDE [Concomitant]
  9. ALPRAZOLAM [Concomitant]
  10. CELEXA [Concomitant]
  11. CALCIUM [Concomitant]
  12. OXYGEN [Concomitant]
  13. FUROSEMIDE [Concomitant]
  14. WARFARIN SODIUM [Concomitant]
  15. SILDENAFIL CITRATE [Concomitant]
  16. AMLODIPINE [Concomitant]

REACTIONS (2)
  - PULMONARY HYPERTENSION [None]
  - RIGHT VENTRICULAR FAILURE [None]
